FAERS Safety Report 8334714-8 (Version None)
Quarter: 2012Q2

REPORT INFORMATION
  Report Type: 
  Country: None (occurrence: None)
  Receive Date: 20120503
  Receipt Date: 20120420
  Transmission Date: 20120825
  Serious: Yes (Death)
  Sender: FDA-Public Use
  Company Number: DE-ROCHE-1061914

PATIENT
  Sex: Male

DRUGS (17)
  1. VINCRISTINE SULFATE [Suspect]
     Indication: B-CELL LYMPHOMA
     Route: 042
     Dates: start: 20120321, end: 20120321
  2. MABTHERA [Suspect]
     Indication: B-CELL LYMPHOMA
     Route: 042
     Dates: start: 20120320, end: 20120320
  3. FILGRASTIM [Suspect]
     Indication: B-CELL LYMPHOMA
     Route: 058
     Dates: start: 20120324, end: 20120402
  4. ONDANSETRON [Concomitant]
     Route: 042
     Dates: start: 20120321
  5. TAMSULOSIN HCL [Concomitant]
     Indication: BENIGN PROSTATIC HYPERPLASIA
     Route: 048
  6. ENOXAPARIN NATRIUM [Concomitant]
     Indication: ATRIAL FIBRILLATION
     Route: 058
     Dates: start: 20080101
  7. PREDNISOLONE ACETATE [Suspect]
     Indication: B-CELL LYMPHOMA
     Route: 048
     Dates: start: 20120321, end: 20120325
  8. CYCLOPHOSPHAMIDE [Suspect]
     Indication: B-CELL LYMPHOMA
     Route: 042
     Dates: start: 20120321, end: 20120321
  9. DOXORUBICIN HYDROCHLORIDE [Suspect]
     Indication: B-CELL LYMPHOMA
     Route: 042
     Dates: start: 20120321, end: 20120321
  10. MAGNESIUM [Concomitant]
     Indication: ATRIAL FIBRILLATION
     Route: 048
  11. LEVOFLOXACIN [Concomitant]
     Indication: ANTIBIOTIC THERAPY
     Route: 048
     Dates: start: 20120325
  12. ACYCLOVIR [Concomitant]
     Indication: ANTIVIRAL PROPHYLAXIS
     Route: 048
     Dates: start: 20120321
  13. SPIRONOLACTONE [Concomitant]
     Indication: DIURETIC THERAPY
     Route: 048
  14. RAMIPRIL [Concomitant]
     Indication: HYPERTENSION
     Route: 048
  15. NITRENDIPIN [Concomitant]
     Indication: HYPERTENSION
     Route: 048
  16. PANTOPRAZOLE [Concomitant]
     Indication: PROPHYLAXIS AGAINST GASTROINTESTINAL ULCER
     Route: 048
     Dates: start: 20120321
  17. ONDANSETRON [Concomitant]
     Route: 048
     Dates: start: 20120322

REACTIONS (1)
  - DEATH [None]
